FAERS Safety Report 4787937-9 (Version None)
Quarter: 2005Q3

REPORT INFORMATION
  Report Type: 
  Country: None (occurrence: None)
  Receive Date: 20050914
  Receipt Date: 20041123
  Transmission Date: 20060218
  Serious: Yes (Disabling)
  Sender: FDA-Public Use
  Company Number: 163-20785-04110574

PATIENT
  Age: 64 Year
  Sex: Male

DRUGS (4)
  1. THALOMID [Suspect]
     Indication: MULTIPLE MYELOMA
     Dosage: 50 MG, DAILY, ORAL
     Route: 048
     Dates: start: 20031201, end: 20041001
  2. DECADRON [Concomitant]
  3. ATENOLOL [Concomitant]
  4. HCTZ (HYDROCHLOROTHIAZIDE) [Concomitant]

REACTIONS (1)
  - NEUROPATHY PERIPHERAL [None]
